FAERS Safety Report 23395537 (Version 1)
Quarter: 2024Q1

REPORT INFORMATION
  Report Type: Spontaneous
  Country: RS (occurrence: None)
  Receive Date: 20240112
  Receipt Date: 20240112
  Transmission Date: 20240409
  Serious: Yes (Other)
  Sender: FDA-Public Use
  Company Number: 2024A007089

PATIENT
  Sex: Male

DRUGS (1)
  1. TAGRISSO [Suspect]
     Active Substance: OSIMERTINIB
     Route: 048
     Dates: start: 20220901

REACTIONS (3)
  - Hepatotoxicity [Unknown]
  - Mucosal inflammation [Unknown]
  - Paronychia [Unknown]
